FAERS Safety Report 14855222 (Version 1)
Quarter: 2018Q2

REPORT INFORMATION
  Report Type: Spontaneous
  Country: US (occurrence: US)
  Receive Date: 20180507
  Receipt Date: 20180507
  Transmission Date: 20180711
  Serious: No
  Sender: FDA-Public Use
  Company Number: US-ROCHE-1944017

PATIENT
  Age: 70 Year
  Sex: Male

DRUGS (4)
  1. UNKNOWN MEDICATIONS [Concomitant]
     Active Substance: UNSPECIFIED INGREDIENT
     Dosage: YES
     Route: 065
  2. ESBRIET [Suspect]
     Active Substance: PIRFENIDONE
     Indication: IDIOPATHIC PULMONARY FIBROSIS
     Dosage: YES
     Route: 065
     Dates: start: 201703
  3. INHALER (UNK INGREDIENTS) [Concomitant]
     Indication: CHRONIC OBSTRUCTIVE PULMONARY DISEASE
     Dosage: YES
     Route: 065
  4. INHALER (UNK INGREDIENTS) [Concomitant]
     Indication: IDIOPATHIC PULMONARY FIBROSIS

REACTIONS (4)
  - Sinusitis [Unknown]
  - Cough [Unknown]
  - Chest pain [Unknown]
  - Upper respiratory tract infection [Unknown]
